FAERS Safety Report 23233579 (Version 1)
Quarter: 2023Q4

REPORT INFORMATION
  Report Type: Other
  Country: PL (occurrence: PL)
  Receive Date: 20231128
  Receipt Date: 20231128
  Transmission Date: 20240110
  Serious: Yes (Death)
  Sender: FDA-Public Use
  Company Number: PL-ALVOGEN-2023092547

PATIENT
  Age: 31 Year
  Sex: Female

DRUGS (1)
  1. FENTANYL [Suspect]
     Active Substance: FENTANYL\FENTANYL CITRATE
     Indication: Suicide attempt
     Dosage: PATCHES THAT RELEASED 50 UG/H OF THE DRUG IN A PREPARATION CONTAINING 5.5 MG
     Route: 062

REACTIONS (9)
  - Suicide attempt [Fatal]
  - Toxicity to various agents [Fatal]
  - Ventricular fibrillation [Fatal]
  - Pulseless electrical activity [Fatal]
  - Loss of consciousness [Fatal]
  - Cardiac arrest [Fatal]
  - Overdose [Fatal]
  - Drug abuse [Fatal]
  - Product administered at inappropriate site [Fatal]
